FAERS Safety Report 11590900 (Version 3)
Quarter: 2016Q4

REPORT INFORMATION
  Report Type: Spontaneous
  Country: US (occurrence: US)
  Receive Date: 20151002
  Receipt Date: 20161104
  Transmission Date: 20170206
  Serious: No
  Sender: FDA-Public Use
  Company Number: US-BRISTOL-MYERS SQUIBB COMPANY-BMS-2015-065262

PATIENT
  Sex: Male

DRUGS (3)
  1. LASIX [Concomitant]
     Active Substance: FUROSEMIDE
     Indication: PRODUCT USED FOR UNKNOWN INDICATION
     Route: 065
  2. SPRYCEL [Suspect]
     Active Substance: DASATINIB
     Indication: PRODUCT USED FOR UNKNOWN INDICATION
     Dosage: 80 MG, QD
     Route: 048
     Dates: start: 20150909
  3. SPRYCEL [Suspect]
     Active Substance: DASATINIB
     Indication: CHRONIC MYELOID LEUKAEMIA
     Dosage: 100 MG, QD
     Route: 048
     Dates: start: 201509

REACTIONS (14)
  - Diarrhoea [Unknown]
  - Flatulence [Unknown]
  - Nipple oedema [Recovered/Resolved]
  - Dyspnoea [Unknown]
  - Wheezing [Unknown]
  - Oedema [Unknown]
  - Decreased appetite [Unknown]
  - Nipple inflammation [Unknown]
  - Fluid retention [Unknown]
  - Fatigue [Unknown]
  - Nipple pain [Recovered/Resolved]
  - Pleural effusion [Unknown]
  - Dysgeusia [Not Recovered/Not Resolved]
  - Abdominal distension [Unknown]
